FAERS Safety Report 20978709 (Version 1)
Quarter: 2022Q2

REPORT INFORMATION
  Report Type: Spontaneous
  Country: CA (occurrence: CA)
  Receive Date: 20220618
  Receipt Date: 20220618
  Transmission Date: 20220721
  Serious: Yes (Other)
  Sender: FDA-Public Use
  Company Number: CA-TEVA-2022-CA-2045791

PATIENT
  Age: 85 Year
  Sex: Male

DRUGS (1)
  1. PREDNISOLONE [Suspect]
     Active Substance: PREDNISOLONE
     Route: 065

REACTIONS (3)
  - Eye operation [Unknown]
  - Upper-airway cough syndrome [Unknown]
  - Throat irritation [Unknown]

NARRATIVE: CASE EVENT DATE: 20220524
